FAERS Safety Report 25047314 (Version 2)
Quarter: 2025Q2

REPORT INFORMATION
  Report Type: Spontaneous
  Country: BR (occurrence: BR)
  Receive Date: 20250306
  Receipt Date: 20250410
  Transmission Date: 20250716
  Serious: Yes (Death, Hospitalization, Other)
  Sender: BIOMARIN
  Company Number: BR-BIOMARINAP-BR-2025-164414

PATIENT

DRUGS (1)
  1. NAGLAZYME [Suspect]
     Active Substance: GALSULFASE
     Indication: Mucopolysaccharidosis VI
     Dosage: UNK, QW
     Route: 042
     Dates: start: 20081229

REACTIONS (16)
  - Pulmonary sepsis [Fatal]
  - Pneumonia [Unknown]
  - Atelectasis [Unknown]
  - Dependence on respirator [Unknown]
  - Condition aggravated [Unknown]
  - Renal failure [Unknown]
  - Asthma [Unknown]
  - Dyspnoea [Unknown]
  - Productive cough [Unknown]
  - Pyrexia [Unknown]
  - Oxygen saturation decreased [Unknown]
  - Pneumonitis [Unknown]
  - Respiratory disorder [Unknown]
  - Blood pressure increased [Unknown]
  - Generalised oedema [Unknown]
  - Oliguria [Unknown]

NARRATIVE: CASE EVENT DATE: 20250201
